FAERS Safety Report 9284427 (Version 1)
Quarter: 2013Q2

REPORT INFORMATION
  Report Type: Report from Study
  Country: US (occurrence: US)
  Receive Date: 20130510
  Receipt Date: 20130510
  Transmission Date: 20140414
  Serious: Yes (Hospitalization)
  Sender: FDA-Public Use
  Company Number: US-ABBOTT-13P-163-1084917-00

PATIENT
  Age: 29 Year
  Sex: Male
  Weight: 53.57 kg

DRUGS (2)
  1. HUMIRA [Suspect]
     Indication: CROHN^S DISEASE
     Dates: start: 2010, end: 201212
  2. HUMIRA [Suspect]
     Dates: start: 201301, end: 201302

REACTIONS (5)
  - Fistula [Recovered/Resolved]
  - Abdominal pain [Recovered/Resolved]
  - Abscess intestinal [Recovered/Resolved]
  - Crohn^s disease [Recovered/Resolved]
  - Abdominal pain [Recovered/Resolved]
